FAERS Safety Report 8215190-2 (Version None)
Quarter: 2012Q1

REPORT INFORMATION
  Report Type: 
  Country: None (occurrence: None)
  Receive Date: 20120316
  Receipt Date: 20120307
  Transmission Date: 20120608
  Serious: Yes (Death)
  Sender: FDA-Public Use
  Company Number: IN-JNJFOC-20120304046

PATIENT
  Age: 72 Year
  Sex: Female

DRUGS (1)
  1. XARELTO [Suspect]
     Indication: THROMBOSIS PROPHYLAXIS
     Route: 048
     Dates: start: 20120227, end: 20120301

REACTIONS (3)
  - HAEMOPTYSIS [None]
  - DYSPNOEA [None]
  - HYPOTENSION [None]
